FAERS Safety Report 14675978 (Version 1)
Quarter: 2018Q1

REPORT INFORMATION
  Report Type: Spontaneous
  Country: US (occurrence: US)
  Receive Date: 20180323
  Receipt Date: 20180323
  Transmission Date: 20180509
  Serious: Yes (Other)
  Sender: FDA-Public Use
  Company Number: None

PATIENT
  Age: 59 Year
  Sex: Male
  Weight: 107.95 kg

DRUGS (10)
  1. ALEVE [Concomitant]
     Active Substance: NAPROXEN SODIUM
  2. DICLOFENAC POTASSIUM ORAL TABLET 50MG [Suspect]
     Active Substance: DICLOFENAC POTASSIUM
     Indication: MUSCULOSKELETAL PAIN
     Route: 048
     Dates: start: 20180219, end: 20180220
  3. METFORMIN ER [Concomitant]
     Active Substance: METFORMIN HYDROCHLORIDE
  4. BAYER ASPIRIN LOW DOSE [Concomitant]
  5. DICLOFENAC POTASSIUM ORAL TABLET 50MG [Suspect]
     Active Substance: DICLOFENAC POTASSIUM
     Indication: MUSCULOSKELETAL STIFFNESS
     Route: 048
     Dates: start: 20180219, end: 20180220
  6. PHENOBARBITAL. [Concomitant]
     Active Substance: PHENOBARBITAL
  7. LISINOPRIL. [Concomitant]
     Active Substance: LISINOPRIL
  8. NYQUIL/COLD + FLU [Concomitant]
  9. MELOXICAM. [Concomitant]
     Active Substance: MELOXICAM
  10. VICKS DAYQUIL [Concomitant]
     Active Substance: DEXTROMETHORPHAN HYDROBROMIDE\GUAIFENESIN

REACTIONS (4)
  - Urticaria [None]
  - Herpes zoster [None]
  - Product quality issue [None]
  - Erythema [None]

NARRATIVE: CASE EVENT DATE: 20180220
